FAERS Safety Report 19933578 (Version 1)
Quarter: 2021Q4

REPORT INFORMATION
  Report Type: Spontaneous
  Country: ES (occurrence: ES)
  Receive Date: 20211008
  Receipt Date: 20211008
  Transmission Date: 20220303
  Serious: Yes (Life-Threatening, Hospitalization, Other)
  Sender: FDA-Public Use
  Company Number: None

PATIENT
  Age: 76 Year
  Sex: Female
  Weight: 72 kg

DRUGS (2)
  1. FLUOROURACIL [Interacting]
     Active Substance: FLUOROURACIL
     Indication: Product used for unknown indication
     Dosage: UNK
     Route: 065
     Dates: start: 2021
  2. BRIVUDINE [Interacting]
     Active Substance: BRIVUDINE
     Indication: Herpes zoster
     Dosage: UNK, PM  0-0-1
     Route: 048
     Dates: start: 20210525, end: 20210603

REACTIONS (3)
  - Mucosal inflammation [Unknown]
  - Agranulocytosis [Unknown]
  - Drug interaction [Unknown]

NARRATIVE: CASE EVENT DATE: 20210602
